FAERS Safety Report 6735581-6 (Version None)
Quarter: 2010Q2

REPORT INFORMATION
  Report Type: 
  Country: None (occurrence: None)
  Receive Date: 20100521
  Receipt Date: 20100520
  Transmission Date: 20101027
  Serious: Yes (Death, Other)
  Sender: FDA-Public Use
  Company Number: DE-B.I. PHARMACEUTICALS,INC./RIDGEFIELD-2007-DE-04558DE

PATIENT
  Sex: Female
  Weight: 39 kg

DRUGS (5)
  1. SPIRIVA [Suspect]
     Indication: CHRONIC OBSTRUCTIVE PULMONARY DISEASE
     Dosage: 6 ANZ
     Route: 055
     Dates: start: 20060816, end: 20070713
  2. VIANI [Concomitant]
     Dosage: 2 PUF
     Route: 055
  3. OXYGEN [Concomitant]
  4. SALBUTAMOL [Concomitant]
  5. ENALAPRIL MALEATE [Concomitant]

REACTIONS (2)
  - DEATH [None]
  - OVERDOSE [None]
